FAERS Safety Report 9210752 (Version 2)
Quarter: 2013Q2

REPORT INFORMATION
  Report Type: Spontaneous
  Country: JP (occurrence: JP)
  Receive Date: 20130404
  Receipt Date: 20130418
  Transmission Date: 20140414
  Serious: Yes (Hospitalization)
  Sender: FDA-Public Use
  Company Number: JP-GLAXOSMITHKLINE-B0873438A

PATIENT
  Age: 81 Year
  Sex: Female

DRUGS (6)
  1. LAMICTAL [Suspect]
     Indication: BIPOLAR I DISORDER
     Dosage: 25MG TWICE PER DAY
     Route: 048
     Dates: start: 20121012, end: 20121124
  2. GOODMIN [Concomitant]
     Dosage: .25MG PER DAY
     Route: 048
  3. LIMAS [Concomitant]
     Dosage: 200MG PER DAY
     Route: 048
  4. LANSOPRAZOLE [Concomitant]
     Dosage: 15MG PER DAY
     Route: 048
  5. LEXAPRO [Concomitant]
     Dosage: 5MG PER DAY
     Route: 048
  6. THYRADIN S [Concomitant]
     Dosage: 25MG PER DAY
     Route: 048

REACTIONS (8)
  - Pneumonia aspiration [Unknown]
  - Drug eruption [Recovering/Resolving]
  - Dermatitis exfoliative [Recovering/Resolving]
  - Pyrexia [Recovering/Resolving]
  - Generalised erythema [Unknown]
  - Rash [Recovering/Resolving]
  - Stomatitis [Unknown]
  - Hypophagia [Unknown]
